FAERS Safety Report 5138470-6 (Version None)
Quarter: 2006Q4

REPORT INFORMATION
  Report Type: 
  Country: None (occurrence: None)
  Receive Date: 20061030
  Receipt Date: 20060301
  Transmission Date: 20070319
  Serious: Yes (Hospitalization)
  Sender: FDA-Public Use
  Company Number: US-GLAXOSMITHKLINE-A0595731A

PATIENT
  Age: 66 Year
  Sex: Female

DRUGS (6)
  1. ADVAIR HFA [Suspect]
     Indication: CHRONIC OBSTRUCTIVE PULMONARY DISEASE
     Route: 055
  2. IMIPRAMINE [Concomitant]
  3. LEVOTHYROXINE SODIUM [Concomitant]
  4. LORAZEPAM [Concomitant]
  5. SULFASALAZINE [Concomitant]
  6. SPIRIVA [Concomitant]

REACTIONS (3)
  - HEART RATE INCREASED [None]
  - HYPERTENSION [None]
  - OEDEMA PERIPHERAL [None]
